FAERS Safety Report 5945084-4 (Version None)
Quarter: 2008Q4

REPORT INFORMATION
  Report Type: 
  Country: None (occurrence: None)
  Receive Date: 20081107
  Receipt Date: 20081023
  Transmission Date: 20090506
  Serious: Yes (Hospitalization)
  Sender: FDA-Public Use
  Company Number: FR-GENENTECH-252235

PATIENT
  Sex: Male

DRUGS (5)
  1. RITUXIMAB [Suspect]
     Indication: MANTLE CELL LYMPHOMA
     Dosage: 450 MG, UNK
     Dates: start: 20070921
  2. CYCLOPHOSPHAMIDE [Suspect]
     Indication: MANTLE CELL LYMPHOMA
     Dosage: 1500 MG, UNK
     Dates: start: 20070921
  3. DOXORUBICIN HCL [Suspect]
     Indication: MANTLE CELL LYMPHOMA
     Dosage: 100 MG, UNK
     Dates: start: 20070921
  4. VINCRISTINE [Suspect]
     Indication: MANTLE CELL LYMPHOMA
     Dosage: 20 MG, UNK
     Dates: start: 20070921
  5. PREDNISONE TAB [Suspect]
     Indication: MANTLE CELL LYMPHOMA
     Dosage: 440 MG, UNK
     Dates: start: 20070921

REACTIONS (5)
  - ACUTE SINUSITIS [None]
  - BACTERIAL SEPSIS [None]
  - FEBRILE BONE MARROW APLASIA [None]
  - HYPERTHERMIA [None]
  - PSEUDOMONAS INFECTION [None]
